FAERS Safety Report 7024030-9 (Version None)
Quarter: 2010Q4

REPORT INFORMATION
  Report Type: 
  Country: None (occurrence: None)
  Receive Date: 20101001
  Receipt Date: 20100920
  Transmission Date: 20110411
  Serious: Yes (Other)
  Sender: FDA-Public Use
  Company Number: US-PERRIGO-10US013162

PATIENT
  Sex: Male
  Weight: 81.633 kg

DRUGS (2)
  1. NICOTINE 4 MG MINT 873 [Suspect]
     Indication: SMOKING CESSATION THERAPY
     Dosage: 24 MG, QD
     Route: 002
     Dates: start: 20080901
  2. ATENOLOL [Concomitant]
     Indication: HYPERTENSION
     Dosage: 50 MG, QD

REACTIONS (3)
  - BLADDER CANCER [None]
  - DRUG INEFFECTIVE [None]
  - INCORRECT DRUG ADMINISTRATION DURATION [None]
